FAERS Safety Report 23107934 (Version 1)
Quarter: 2023Q4

REPORT INFORMATION
  Report Type: Spontaneous
  Country: JP (occurrence: JP)
  Receive Date: 20231026
  Receipt Date: 20231026
  Transmission Date: 20240110
  Serious: Yes (Other)
  Sender: FDA-Public Use
  Company Number: JP-PFIZER INC-202300333971

PATIENT
  Age: 7 Decade
  Sex: Female

DRUGS (1)
  1. ENBREL [Suspect]
     Active Substance: ETANERCEPT
     Indication: Product used for unknown indication
     Dosage: UNK
     Route: 065

REACTIONS (5)
  - Internal haemorrhage [Not Recovered/Not Resolved]
  - Haemorrhage [Unknown]
  - Injection site bruising [Not Recovered/Not Resolved]
  - Myalgia [Unknown]
  - Anxiety [Unknown]
